FAERS Safety Report 24939444 (Version 1)
Quarter: 2025Q1

REPORT INFORMATION
  Report Type: Report from Study
  Country: US (occurrence: US)
  Receive Date: 20250206
  Receipt Date: 20250206
  Transmission Date: 20250409
  Serious: Yes (Hospitalization)
  Sender: ABBVIE
  Company Number: US-ABBVIE-6113291

PATIENT
  Age: 65 Year
  Sex: Female

DRUGS (1)
  1. SKYRIZI [Suspect]
     Active Substance: RISANKIZUMAB-RZAA
     Indication: Product used for unknown indication
     Route: 058
     Dates: start: 20241029

REACTIONS (3)
  - Renal neoplasm [Recovering/Resolving]
  - Cystitis bacterial [Recovering/Resolving]
  - Blood urine present [Recovered/Resolved]

NARRATIVE: CASE EVENT DATE: 20250113
